FAERS Safety Report 23785030 (Version 1)
Quarter: 2024Q2

REPORT INFORMATION
  Report Type: Spontaneous
  Country: US (occurrence: None)
  Receive Date: 20240425
  Receipt Date: 20240425
  Transmission Date: 20240716
  Serious: No
  Sender: FDA-Public Use
  Company Number: None

PATIENT
  Age: 54 Year
  Sex: Female
  Weight: 56.25 kg

DRUGS (8)
  1. CLADRIBINE [Suspect]
     Active Substance: CLADRIBINE
     Indication: Relapsing-remitting multiple sclerosis
     Dosage: OTHER QUANTITY : 1 TABLET(S);?FREQUENCY : DAILY;?
     Route: 048
     Dates: start: 20240406, end: 20240410
  2. ALBUTEROL [Concomitant]
     Active Substance: ALBUTEROL
  3. ONDANSETRON [Concomitant]
     Active Substance: ONDANSETRON
  4. VALACYCLOVIR [Concomitant]
     Active Substance: VALACYCLOVIR HYDROCHLORIDE
  5. ubrelvy [Concomitant]
  6. vitd3 [Concomitant]
  7. vitb12 [Concomitant]
  8. IBUPROFEN [Concomitant]
     Active Substance: IBUPROFEN

REACTIONS (10)
  - Migraine [None]
  - Nausea [None]
  - Fatigue [None]
  - Insomnia [None]
  - Back pain [None]
  - Arthralgia [None]
  - Oral herpes [None]
  - Aphthous ulcer [None]
  - Upper respiratory tract infection [None]
  - Alopecia [None]

NARRATIVE: CASE EVENT DATE: 20240409
